FAERS Safety Report 7901377 (Version 3)
Quarter: 2012Q4

REPORT INFORMATION
  Report Type: 
  Country: US (occurrence: US)
  Receive Date: 20110415
  Receipt Date: 20120910
  Transmission Date: 20130627
  Serious: Yes (Hospitalization, Other)
  Sender: FDA-Public Use
  Company Number: US-BAYER-2011-032280

PATIENT
  Age: 19 Year
  Sex: Female
  Weight: 57 kg

DRUGS (5)
  1. YASMIN [Suspect]
     Indication: CONTRACEPTION
     Dosage: UNK
     Dates: start: 20030911, end: 20031030
  2. OCELLA [Suspect]
     Dosage: UNK UNK, QD
     Route: 048
  3. HYDROCODONE W/APAP [Concomitant]
     Indication: PAIN
     Dosage: UNK
     Dates: start: 20031015
  4. IBUPROFEN AL [Concomitant]
  5. CITALOPRAM HYDROBROMIDE [Concomitant]
     Dosage: 20 mg, every day
     Route: 048

REACTIONS (12)
  - Pulmonary embolism [Unknown]
  - Deep vein thrombosis [Recovered/Resolved]
  - Fear [Unknown]
  - Pain [Unknown]
  - Emotional distress [Unknown]
  - Pain in extremity [Recovered/Resolved]
  - Oedema peripheral [Recovered/Resolved]
  - Chest pain [Unknown]
  - Dyspnoea [Unknown]
  - Injury [None]
  - Injury [None]
  - Deep vein thrombosis [None]
